FAERS Safety Report 10170049 (Version 2)
Quarter: 2014Q2

REPORT INFORMATION
  Report Type: Spontaneous
  Country: US (occurrence: US)
  Receive Date: 20140513
  Receipt Date: 20140605
  Transmission Date: 20141212
  Serious: Yes (Hospitalization)
  Sender: FDA-Public Use
  Company Number: US-JNJFOC-20140504737

PATIENT
  Age: 40 Year
  Sex: Female

DRUGS (6)
  1. REMICADE [Suspect]
     Indication: COLITIS ULCERATIVE
     Route: 042
     Dates: start: 20140308
  2. REMICADE [Suspect]
     Indication: COLITIS ULCERATIVE
     Route: 042
     Dates: start: 20131117
  3. REMICADE [Suspect]
     Indication: COLITIS ULCERATIVE
     Route: 042
     Dates: start: 20131116
  4. ADVIL [Concomitant]
     Indication: ARTHRALGIA
     Dosage: PRN
     Route: 065
  5. BUSPIRONE [Concomitant]
     Indication: DEPRESSION
     Dosage: 9 HRS
     Route: 065
  6. OMEPRAZOLE [Concomitant]
     Indication: DEPRESSION
     Dosage: 9 HRS
     Route: 048

REACTIONS (5)
  - Interstitial lung disease [Recovering/Resolving]
  - Arthralgia [Recovering/Resolving]
  - Weight increased [Unknown]
  - Pneumothorax [Recovered/Resolved]
  - Drug ineffective [Unknown]
